FAERS Safety Report 17279293 (Version 1)
Quarter: 2020Q1

REPORT INFORMATION
  Report Type: Report from Study
  Country: IT (occurrence: IT)
  Receive Date: 20200116
  Receipt Date: 20200116
  Transmission Date: 20200409
  Serious: Yes (Other)
  Sender: FDA-Public Use
  Company Number: IT-PFIZER INC-2020017879

PATIENT
  Age: 52 Year
  Sex: Male

DRUGS (8)
  1. INVEGA [Concomitant]
     Active Substance: PALIPERIDONE
     Dosage: 6 MG, UNK
  2. METHADONE HYDROCHLORIDE. [Concomitant]
     Active Substance: METHADONE HYDROCHLORIDE
     Dosage: 30 MG, UNK
  3. NOZINAN [LEVOMEPROMAZINE HYDROCHLORIDE] [Concomitant]
     Active Substance: LEVOMEPROMAZINE HYDROCHLORIDE
     Dosage: 25 MG, UNK
  4. PARIET [Concomitant]
     Active Substance: RABEPRAZOLE SODIUM
     Dosage: UNK
  5. RIFACOL [Concomitant]
     Active Substance: RIFAXIMIN
     Dosage: 400 MG, UNK
  6. GABAPENTIN. [Suspect]
     Active Substance: GABAPENTIN
     Dosage: 300 MG, UNK
     Route: 048
     Dates: start: 20190818, end: 20190818
  7. RIVOTRIL [Suspect]
     Active Substance: CLONAZEPAM
     Dosage: 4 DF, UNK
     Dates: start: 20190818, end: 20190818
  8. TAVOR (LORAZEPAM) [Concomitant]
     Active Substance: LORAZEPAM
     Dosage: UNK

REACTIONS (4)
  - Sopor [Recovering/Resolving]
  - Drug abuse [Recovering/Resolving]
  - Dysarthria [Recovering/Resolving]
  - Suicide attempt [Recovering/Resolving]

NARRATIVE: CASE EVENT DATE: 20190818
